FAERS Safety Report 9521283 (Version 1)
Quarter: 2013Q3

REPORT INFORMATION
  Report Type: Spontaneous
  Country: US (occurrence: US)
  Receive Date: 20130913
  Receipt Date: 20130913
  Transmission Date: 20140515
  Serious: No
  Sender: FDA-Public Use
  Company Number: US-PFIZER INC-2013258951

PATIENT
  Sex: Male

DRUGS (6)
  1. NORVASC [Suspect]
     Dosage: UNK
  2. MORPHINE SULFATE [Suspect]
     Dosage: UNK
  3. PROCARDIA [Suspect]
     Dosage: UNK
  4. DILANTIN [Suspect]
     Dosage: UNK
  5. VERAPAMIL HCL [Suspect]
     Dosage: UNK
  6. HYZAAR [Suspect]
     Dosage: UNK

REACTIONS (1)
  - Drug hypersensitivity [Unknown]
